FAERS Safety Report 17213709 (Version 1)
Quarter: 2019Q4

REPORT INFORMATION
  Report Type: Spontaneous
  Country: FR (occurrence: FR)
  Receive Date: 20191230
  Receipt Date: 20191230
  Transmission Date: 20200122
  Serious: Yes (Hospitalization, Other)
  Sender: FDA-Public Use
  Company Number: FR-US-PROVELL PHARMACEUTICALS LLC-9003048

PATIENT
  Sex: Female

DRUGS (1)
  1. LEVOTHYROX NF [Suspect]
     Active Substance: LEVOTHYROXINE SODIUM
     Indication: POST PROCEDURAL HYPOTHYROIDISM
     Dates: start: 201703, end: 20171002

REACTIONS (18)
  - Vertigo [Recovered/Resolved]
  - Feeling cold [Recovered/Resolved]
  - Impaired driving ability [Recovered/Resolved]
  - Fatigue [Recovered/Resolved]
  - Impatience [Recovered/Resolved]
  - Loss of personal independence in daily activities [Recovered/Resolved]
  - Ear discomfort [Recovered/Resolved]
  - Headache [Recovered/Resolved]
  - Facial paralysis [Recovered/Resolved]
  - Arthralgia [Recovered/Resolved]
  - Crying [Recovered/Resolved]
  - Head discomfort [Recovered/Resolved]
  - Eye movement disorder [Recovered/Resolved]
  - Paraesthesia [Recovered/Resolved]
  - Balance disorder [Recovered/Resolved]
  - Nausea [Recovered/Resolved]
  - Anxiety [Recovered/Resolved]
  - Social avoidant behaviour [Recovered/Resolved]

NARRATIVE: CASE EVENT DATE: 2017
